FAERS Safety Report 24302217 (Version 1)
Quarter: 2024Q3

REPORT INFORMATION
  Report Type: Spontaneous
  Country: GB (occurrence: GB)
  Receive Date: 20240910
  Receipt Date: 20240910
  Transmission Date: 20241016
  Serious: Yes (Other)
  Sender: BOEHRINGER INGELHEIM
  Company Number: GB-MHRA-TPP16632291C15373390YC1725896592536

PATIENT
  Age: 67 Year
  Sex: Female
  Weight: 83 kg

DRUGS (15)
  1. EMPAGLIFLOZIN [Suspect]
     Active Substance: EMPAGLIFLOZIN
     Indication: Ill-defined disorder
     Dates: start: 20240805, end: 20240902
  2. SPIRIVA [Concomitant]
     Active Substance: TIOTROPIUM BROMIDE MONOHYDRATE
     Indication: Ill-defined disorder
     Dosage: TWO PUFFS ONCE DAILY?FOA- TPP YC - PLEASE RECLASSIFY
     Dates: start: 20231023
  3. CLOTRIMAZOLE [Concomitant]
     Active Substance: CLOTRIMAZOLE
     Indication: Ill-defined disorder
     Dosage: INSERT ONE AT NIGHT?FOA- TPP YC - PLEASE RECLASSIFY
     Dates: start: 20240904, end: 20240905
  4. HYDROCORTISONE [Concomitant]
     Active Substance: HYDROCORTISONE\HYDROCORTISONE ACETATE
     Indication: Ill-defined disorder
     Dosage: FOA- TPP YC - PLEASE RECLASSIFY
     Dates: start: 20240904
  5. AMITRIPTYLINE HYDROCHLORIDE [Concomitant]
     Active Substance: AMITRIPTYLINE HYDROCHLORIDE
     Indication: Ill-defined disorder
     Dosage: TAKE FOUR AT NIGHT?FOA- TPP YC - PLEASE RECLASSIFY
     Dates: start: 20231023
  6. FLUTICASONE FUROATE [Concomitant]
     Active Substance: FLUTICASONE FUROATE
     Indication: Ill-defined disorder
     Dosage: FOA- TPP YC - PLEASE RECLASSIFY
     Dates: start: 20231023
  7. FEXOFENADINE [Concomitant]
     Active Substance: FEXOFENADINE HYDROCHLORIDE
     Indication: Ill-defined disorder
     Dosage: FOA- TPP YC - PLEASE RECLASSIFY
     Dates: start: 20231023
  8. FLUOXETINE [Concomitant]
     Active Substance: FLUOXETINE HYDROCHLORIDE
     Indication: Ill-defined disorder
     Dosage: FOA- TPP YC - PLEASE RECLASSIFY
     Dates: start: 20231023
  9. BECLOMETHASONE\FORMOTEROL [Concomitant]
     Active Substance: BECLOMETHASONE\FORMOTEROL
     Indication: Ill-defined disorder
     Dosage: 2 PUFFS TWICE DAILY VIA SPACER AS TREATMENT  W...?FOA- TPP YC - PLEASE RECLASSIFY
     Dates: start: 20231023
  10. GABAPENTIN [Concomitant]
     Active Substance: GABAPENTIN
     Indication: Ill-defined disorder
     Dosage: FOA- TPP YC - PLEASE RECLASSIFY
     Dates: start: 20231023
  11. METFORMIN [Concomitant]
     Active Substance: METFORMIN HYDROCHLORIDE
     Indication: Ill-defined disorder
     Dosage: FOA- TPP YC - PLEASE RECLASSIFY
     Dates: start: 20231023
  12. MONTELUKAST [Concomitant]
     Active Substance: MONTELUKAST SODIUM
     Indication: Ill-defined disorder
     Dosage: ONE TO BE TAKEN AT NIGHT?FOA- TPP YC - PLEASE RECLASSIFY
     Dates: start: 20231023
  13. ACETAMINOPHEN\CODEINE PHOSPHATE [Concomitant]
     Active Substance: ACETAMINOPHEN\CODEINE PHOSPHATE
     Indication: Ill-defined disorder
     Dosage: FOA- TPP YC - PLEASE RECLASSIFY
     Dates: start: 20231023
  14. MEBEVERINE HYDROCHLORIDE [Concomitant]
     Active Substance: MEBEVERINE HYDROCHLORIDE
     Indication: Ill-defined disorder
     Dosage: - 20 MINUTES BEFORE FOOD?FOA- TPP YC - PLEASE RECLASSIFY
     Dates: start: 20231030
  15. DAPAGLIFLOZIN [Concomitant]
     Active Substance: DAPAGLIFLOZIN
     Indication: Ill-defined disorder
     Dosage: FOA- TPP YC - PLEASE RECLASSIFY
     Dates: start: 20240909

REACTIONS (1)
  - Blister [Recovered/Resolved]

NARRATIVE: CASE EVENT DATE: 20240811
